FAERS Safety Report 11148244 (Version 1)
Quarter: 2015Q2

REPORT INFORMATION
  Report Type: Spontaneous
  Country: US (occurrence: None)
  Receive Date: 20150528
  Receipt Date: 20150528
  Transmission Date: 20150821
  Serious: Yes (Life-Threatening, Hospitalization)
  Sender: FDA-Public Use
  Company Number: None

PATIENT
  Age: 75 Year
  Sex: Female
  Weight: 45.7 kg

DRUGS (2)
  1. RIVAROXABAN 10 MG JANSSEN [Suspect]
     Active Substance: RIVAROXABAN
     Indication: HIP ARTHROPLASTY
     Dosage: 1 TABLET QD ORAL
     Route: 048
     Dates: start: 20150417, end: 20150424
  2. RIVAROXABAN 10 MG JANSSEN [Suspect]
     Active Substance: RIVAROXABAN
     Indication: THROMBOSIS PROPHYLAXIS
     Dosage: 1 TABLET QD ORAL
     Route: 048
     Dates: start: 20150417, end: 20150424

REACTIONS (7)
  - Gastrointestinal haemorrhage [None]
  - Atrial fibrillation [None]
  - Duodenal ulcer [None]
  - Gastritis [None]
  - Deep vein thrombosis [None]
  - Anaemia [None]
  - Dizziness [None]

NARRATIVE: CASE EVENT DATE: 20150425
